FAERS Safety Report 11078558 (Version 1)
Quarter: 2015Q2

REPORT INFORMATION
  Report Type: Spontaneous
  Country: GB (occurrence: GB)
  Receive Date: 20150430
  Receipt Date: 20150430
  Transmission Date: 20150821
  Serious: Yes (Other)
  Sender: FDA-Public Use
  Company Number: GB-MERCK-1504GBR023808

PATIENT
  Age: 76 Year
  Sex: Female
  Weight: 74 kg

DRUGS (8)
  1. EZETIMIBE. [Suspect]
     Active Substance: EZETIMIBE
     Dates: start: 20141230
  2. CLOPIDOGREL [Concomitant]
     Active Substance: CLOPIDOGREL BISULFATE
     Dates: start: 20141230
  3. PRAVASTATIN [Concomitant]
     Active Substance: PRAVASTATIN\PRAVASTATIN SODIUM
     Dosage: AT NIGHT
     Dates: start: 20150420
  4. ACETAMINOPHEN (+) DIHYDROCODEINE BITARTRATE [Concomitant]
     Dosage: TAKE 1 OR 2 FOUR TIMES A DAY
     Dates: start: 20141230
  5. AZATHIOPRINE. [Concomitant]
     Active Substance: AZATHIOPRINE
     Dates: start: 20141230
  6. SERETIDE [Concomitant]
     Active Substance: FLUTICASONE FUROATE\SALMETEROL XINAFOATE
     Route: 055
     Dates: start: 20141230
  7. ACETAMINOPHEN. [Concomitant]
     Active Substance: ACETAMINOPHEN
     Dosage: TAKE 1 OR 2 FOUR TIMES A DAY
     Dates: start: 20141230
  8. ALBUTEROL. [Concomitant]
     Active Substance: ALBUTEROL
     Route: 055
     Dates: start: 20141230

REACTIONS (1)
  - Breast swelling [Recovered/Resolved]

NARRATIVE: CASE EVENT DATE: 20150420
